FAERS Safety Report 24909147 (Version 1)
Quarter: 2025Q1

REPORT INFORMATION
  Report Type: Spontaneous
  Country: US (occurrence: US)
  Receive Date: 20250131
  Receipt Date: 20250131
  Transmission Date: 20250409
  Serious: No
  Sender: SHIONOGI
  Company Number: US-shionogi-2024000558

PATIENT

DRUGS (4)
  1. CEFIDEROCOL [Suspect]
     Active Substance: CEFIDEROCOL
     Indication: Klebsiella infection
     Route: 065
  2. COLISTIN [Suspect]
     Active Substance: COLISTIN
     Indication: Klebsiella infection
     Route: 065
  3. TIGECYCLINE [Suspect]
     Active Substance: TIGECYCLINE
     Indication: Klebsiella infection
     Route: 065
  4. AVIBACTAM SODIUM\CEFTAZIDIME [Concomitant]
     Active Substance: AVIBACTAM SODIUM\CEFTAZIDIME
     Indication: Klebsiella infection
     Route: 065

REACTIONS (3)
  - Infection [Unknown]
  - Treatment failure [Unknown]
  - Bacterial infection [Unknown]
